FAERS Safety Report 9867574 (Version 1)
Quarter: 2014Q1

REPORT INFORMATION
  Report Type: Spontaneous
  Country: GB (occurrence: GB)
  Receive Date: 20140204
  Receipt Date: 20140204
  Transmission Date: 20141002
  Serious: Yes (Hospitalization)
  Sender: FDA-Public Use
  Company Number: GB-NOVOPROD-398836

PATIENT
  Age: 56 Year
  Sex: Male

DRUGS (3)
  1. NOVORAPID [Suspect]
     Indication: DIABETES MELLITUS
     Dosage: 500 U, SINGLE
     Route: 058
     Dates: start: 20140112
  2. LANTUS [Suspect]
     Indication: DIABETES MELLITUS
     Dosage: 30 U, QD
     Route: 058
  3. LANTUS [Suspect]
     Dosage: 140 U, SINGLE
     Dates: start: 20140112

REACTIONS (2)
  - Alanine aminotransferase increased [Unknown]
  - Intentional overdose [Unknown]
